FAERS Safety Report 11603354 (Version 1)
Quarter: 2015Q4

REPORT INFORMATION
  Report Type: Spontaneous
  Country: US (occurrence: None)
  Receive Date: 20151005
  Receipt Date: 20151005
  Transmission Date: 20160304
  Serious: Yes (Disabling)
  Sender: FDA-Public Use
  Company Number: None

PATIENT
  Age: 40 Year
  Sex: Female
  Weight: 77.11 kg

DRUGS (1)
  1. LEVAQUIN [Suspect]
     Active Substance: LEVOFLOXACIN
     Indication: BRONCHITIS
     Dosage: FOUR TIMES DAILY
     Route: 048

REACTIONS (8)
  - Bedridden [None]
  - Fatigue [None]
  - Arthralgia [None]
  - Vision blurred [None]
  - Loss of employment [None]
  - Gastrointestinal disorder [None]
  - Neuropathy peripheral [None]
  - Myalgia [None]
